FAERS Safety Report 8287974-6 (Version None)
Quarter: 2012Q2

REPORT INFORMATION
  Report Type: 
  Country: None (occurrence: None)
  Receive Date: 20120416
  Receipt Date: 20120413
  Transmission Date: 20120825
  Serious: No
  Sender: FDA-Public Use
  Company Number: US-B.I. PHARMACEUTICALS,INC./RIDGEFIELD-2012-BP-07064BP

PATIENT
  Sex: Female

DRUGS (11)
  1. GLIPIZIDE [Concomitant]
     Indication: DIABETES MELLITUS
     Dosage: 20 MG
     Route: 048
  2. COREG [Concomitant]
     Indication: HYPERTENSION
     Dosage: 25 MG
     Route: 048
  3. LISINOPRIL [Concomitant]
     Indication: HYPERTENSION
     Dosage: 25 MG
     Route: 048
  4. TRIAMTERENE [Concomitant]
     Dosage: 37.5 MG
     Route: 048
  5. PRADAXA [Suspect]
     Indication: ATRIAL FIBRILLATION
     Dosage: 300 MG
     Route: 048
     Dates: start: 20111213
  6. NAPROXEN (ALEVE) [Concomitant]
     Indication: RHEUMATOID ARTHRITIS
     Dosage: 440 MG
     Route: 048
  7. CRESTOR [Concomitant]
     Indication: BLOOD CHOLESTEROL INCREASED
     Dosage: 10 MG
     Route: 048
  8. LEVEMIR [Concomitant]
     Indication: DIABETES MELLITUS
     Route: 058
  9. NOVOLOG [Concomitant]
     Indication: DIABETES MELLITUS
     Route: 058
  10. GABAPENTIN [Concomitant]
     Indication: NEURALGIA
     Dosage: 300 MG
     Route: 048
  11. MAG OX [Concomitant]
     Indication: HYPOMAGNESAEMIA
     Dosage: 800 MG
     Route: 048

REACTIONS (1)
  - VESSEL PERFORATION [None]
